APPROVED DRUG PRODUCT: SUNLENCA
Active Ingredient: LENACAPAVIR SODIUM
Strength: EQ 300MG BASE
Dosage Form/Route: TABLET;ORAL
Application: N215974 | Product #001
Applicant: GILEAD SCIENCES INC
Approved: Dec 22, 2022 | RLD: Yes | RS: Yes | Type: RX

PATENTS:
Patent 11944611 | Expires: Aug 28, 2041
Patent 9951043 | Expires: Feb 28, 2034
Patent 10654827 | Expires: Aug 17, 2037
Patent 11267799 | Expires: Aug 16, 2038
Patent 10071985 | Expires: Aug 17, 2037

EXCLUSIVITY:
Code: NCE | Date: Dec 22, 2027